FAERS Safety Report 14238502 (Version 2)
Quarter: 2017Q4

REPORT INFORMATION
  Report Type: Spontaneous
  Country: VE (occurrence: VE)
  Receive Date: 20171130
  Receipt Date: 20171214
  Transmission Date: 20180321
  Serious: Yes (Other)
  Sender: FDA-Public Use
  Company Number: PHHY2017VE174458

PATIENT
  Sex: Male

DRUGS (3)
  1. HYDREA [Concomitant]
     Active Substance: HYDROXYUREA
     Indication: ANAEMIA PROPHYLAXIS
  2. HYDREA [Concomitant]
     Active Substance: HYDROXYUREA
     Indication: CONVULSION PROPHYLAXIS
     Dosage: 500 MG, UNK
     Route: 048
  3. TEGRETOL [Suspect]
     Active Substance: CARBAMAZEPINE
     Indication: SICKLE CELL ANAEMIA
     Dosage: 400 ML, Q12H
     Route: 048
     Dates: start: 2014

REACTIONS (3)
  - Product use in unapproved indication [Unknown]
  - Pain [Recovered/Resolved]
  - Cerebrovascular accident [Unknown]

NARRATIVE: CASE EVENT DATE: 2014
